FAERS Safety Report 4413600-X (Version None)
Quarter: 2004Q3

REPORT INFORMATION
  Report Type: 
  Country: None (occurrence: None)
  Receive Date: 20040728
  Receipt Date: 20040708
  Transmission Date: 20050211
  Serious: Yes (Hospitalization)
  Sender: FDA-Public Use
  Company Number: JP_030901737

PATIENT
  Age: 25 Year
  Sex: Male
  Weight: 61 kg

DRUGS (8)
  1. ZYPREXA [Suspect]
     Indication: SCHIZOPHRENIA, PARANOID TYPE
     Dosage: 5 MG/1 DAY
     Dates: start: 20021211, end: 20030506
  2. PARKINSONAL (TRIHEXYPHENIDYL HYDROCHLORIDE) [Concomitant]
  3. TM [Concomitant]
  4. HALCION [Concomitant]
  5. ROHYPNOL (FLUNITRAZEPAM) [Concomitant]
  6. RIZE (CLOTIAZEPAM) [Concomitant]
  7. HALOPERIDOL [Concomitant]
  8. SENNOSIDE A+B [Concomitant]

REACTIONS (6)
  - CONDITION AGGRAVATED [None]
  - EXCITABILITY [None]
  - RESTLESSNESS [None]
  - SCHIZOPHRENIA [None]
  - SUICIDAL IDEATION [None]
  - TREMOR [None]
